FAERS Safety Report 24403379 (Version 1)
Quarter: 2024Q4

REPORT INFORMATION
  Report Type: Spontaneous
  Country: US (occurrence: US)
  Receive Date: 20241007
  Receipt Date: 20241007
  Transmission Date: 20250115
  Serious: No
  Sender: ROCHE
  Company Number: US-ROCHE-3477036

PATIENT

DRUGS (1)
  1. GAZYVA [Suspect]
     Active Substance: OBINUTUZUMAB
     Indication: Chronic lymphocytic leukaemia
     Dosage: TAM STATED IT WAS THE CYCLE 1 DAY 1 100 MG DOSE ;ONGOING: UNKNOWN
     Route: 042

REACTIONS (1)
  - Platelet count decreased [Unknown]
